FAERS Safety Report 9275936 (Version 1)
Quarter: 2012Q4

REPORT INFORMATION
  Report Type: Spontaneous
  Country: BR (occurrence: None)
  Receive Date: 20121109
  Receipt Date: 20121109
  Transmission Date: 20130627
  Serious: Yes (Other)
  Sender: FDA-Public Use
  Company Number: 2012S1000749

PATIENT
  Age: 77 Year
  Sex: Female

DRUGS (9)
  1. CUBICIN (DAPTOMYCIN) [Suspect]
     Indication: PERITONITIS BACTERIAL
  2. ASPIRIN [Concomitant]
  3. ISOSORBIDE MONONITRATE [Concomitant]
  4. LOSARTAN [Concomitant]
  5. FUROSEMIDE [Concomitant]
  6. SIMVASTATIN [Concomitant]
  7. METRONIDAZOLE [Concomitant]
  8. CIPROFLOXACIN [Concomitant]
  9. PIPERACILLIN W/TAZOBACTAM [Concomitant]

REACTIONS (2)
  - Atrial fibrillation [None]
  - Acute pulmonary oedema [None]
